FAERS Safety Report 4719580-1 (Version None)
Quarter: 2005Q3

REPORT INFORMATION
  Report Type: 
  Country: None (occurrence: None)
  Receive Date: 20050721
  Receipt Date: 20031125
  Transmission Date: 20060218
  Serious: Yes (Hospitalization)
  Sender: FDA-Public Use
  Company Number: US-GLAXOSMITHKLINE-A0441700A

PATIENT
  Age: 51 Year
  Sex: Male

DRUGS (16)
  1. AVANDIA [Suspect]
     Dosage: 8MG PER DAY
     Route: 048
     Dates: start: 20010703, end: 20020514
  2. MINOXIDIL [Suspect]
  3. AMARYL [Concomitant]
  4. TOPROL-XL [Concomitant]
  5. LASIX [Concomitant]
  6. POTASSIUM CHLORIDE [Concomitant]
  7. DIGOXIN [Concomitant]
  8. LIMBITROL [Concomitant]
  9. GLUCOPHAGE [Concomitant]
  10. LOPID [Concomitant]
  11. AVAPRO [Concomitant]
  12. XANAX [Concomitant]
  13. ASPIRIN [Concomitant]
  14. GLUCOPHAGE [Concomitant]
  15. ATARAX [Concomitant]
  16. PERCOCET [Concomitant]

REACTIONS (1)
  - CARDIAC FAILURE CONGESTIVE [None]
